FAERS Safety Report 7829512-5 (Version None)
Quarter: 2011Q4

REPORT INFORMATION
  Report Type: 
  Country: None (occurrence: None)
  Receive Date: 20111020
  Receipt Date: 20111005
  Transmission Date: 20120403
  Serious: Yes (Hospitalization)
  Sender: FDA-Public Use
  Company Number: JP-ROCHE-771640

PATIENT
  Sex: Female
  Weight: 60 kg

DRUGS (41)
  1. ACTEMRA [Suspect]
     Indication: RHEUMATOID ARTHRITIS
     Route: 041
     Dates: start: 20080520, end: 20080520
  2. ACTEMRA [Suspect]
     Route: 041
     Dates: start: 20080617, end: 20080617
  3. ACTEMRA [Suspect]
     Route: 041
     Dates: start: 20091022, end: 20091022
  4. ACTEMRA [Suspect]
     Route: 041
     Dates: start: 20100709, end: 20100709
  5. SELBEX [Concomitant]
     Route: 048
  6. ACTEMRA [Suspect]
     Route: 041
     Dates: start: 20090309, end: 20090309
  7. ACTEMRA [Suspect]
     Route: 041
     Dates: start: 20100611, end: 20100611
  8. INDOMETACIN [Concomitant]
     Dosage: FORM TAPE, PROPER QUANTITY. DRUG NAME REPORTED AS INTENURSE.
     Route: 061
  9. ACTEMRA [Suspect]
     Route: 041
     Dates: start: 20080715, end: 20080715
  10. ACTEMRA [Suspect]
     Route: 041
     Dates: start: 20100114, end: 20100114
  11. VOLTAREN [Concomitant]
     Route: 048
  12. ISODINE [Concomitant]
     Dosage: GARGLE, ROUTE OROPHARINGEAL. PROPER QUANTITY
     Route: 050
  13. ACTEMRA [Suspect]
     Route: 041
     Dates: start: 20081205, end: 20081205
  14. ACTEMRA [Suspect]
     Route: 041
     Dates: start: 20090404, end: 20090404
  15. ACTEMRA [Suspect]
     Route: 041
     Dates: start: 20100807, end: 20100807
  16. CRESTOR [Concomitant]
     Route: 048
  17. ACTEMRA [Suspect]
     Route: 041
     Dates: start: 20081008, end: 20081008
  18. ACTEMRA [Suspect]
     Route: 041
     Dates: start: 20090528, end: 20090528
  19. ACTEMRA [Suspect]
     Route: 041
     Dates: start: 20091119, end: 20091119
  20. ACTEMRA [Suspect]
     Route: 041
     Dates: start: 20091217, end: 20091217
  21. ACTEMRA [Suspect]
     Route: 041
     Dates: start: 20100213, end: 20100213
  22. ACTEMRA [Suspect]
     Route: 041
     Dates: start: 20100514, end: 20100514
  23. RABEPRAZOLE SODIUM [Concomitant]
     Route: 048
  24. CORINAEL-L [Concomitant]
     Route: 048
  25. KETOPROFEN [Concomitant]
     Dosage: FORM TAPE, PROPER QUANTITY
     Route: 061
  26. ACTEMRA [Suspect]
     Route: 041
     Dates: start: 20080812, end: 20080812
  27. ACTEMRA [Suspect]
     Route: 041
     Dates: start: 20090206, end: 20090206
  28. ACTEMRA [Suspect]
     Route: 041
     Dates: start: 20090724, end: 20090724
  29. ACTEMRA [Suspect]
     Route: 041
     Dates: start: 20100415, end: 20100415
  30. ACTONEL [Concomitant]
     Route: 048
  31. ACTEMRA [Suspect]
     Route: 041
     Dates: start: 20090430, end: 20090430
  32. ACTEMRA [Suspect]
     Route: 041
     Dates: start: 20100316, end: 20100316
  33. METHYLPREDNISOLONE [Suspect]
     Indication: RHEUMATOID ARTHRITIS
     Dosage: PERORAL AGENT.
     Route: 048
  34. LIPITOR [Concomitant]
     Route: 048
  35. ACTEMRA [Suspect]
     Route: 041
     Dates: start: 20080912, end: 20080912
  36. ACTEMRA [Suspect]
     Route: 041
     Dates: start: 20090109, end: 20090109
  37. ACTEMRA [Suspect]
     Route: 041
     Dates: start: 20090625, end: 20090625
  38. ACTEMRA [Suspect]
     Route: 041
     Dates: start: 20100903, end: 20100903
  39. ACTEMRA [Suspect]
     Dosage: 456-480 MG
     Route: 042
  40. METHYLPREDNISOLONE [Suspect]
     Route: 048
  41. PROMAC [Concomitant]
     Route: 048

REACTIONS (3)
  - SUBCUTANEOUS ABSCESS [None]
  - NASOPHARYNGITIS [None]
  - ANAL FISSURE [None]
